FAERS Safety Report 4903692-3 (Version None)
Quarter: 2006Q1

REPORT INFORMATION
  Report Type: 
  Country: None (occurrence: None)
  Receive Date: 20060208
  Receipt Date: 20060124
  Transmission Date: 20060701
  Serious: Yes (Hospitalization)
  Sender: FDA-Public Use
  Company Number: US-SANOFI-SYNTHELABO-F01200600215

PATIENT
  Sex: Female

DRUGS (13)
  1. OXALIPLATIN [Suspect]
     Indication: COLORECTAL CANCER METASTATIC
     Route: 042
     Dates: start: 20060104, end: 20060104
  2. FLUOROURACIL [Suspect]
     Dosage: 2400 MG/M2 IV ON DAY 1 AND DAY 2, Q2W
     Route: 042
     Dates: start: 20060104, end: 20060105
  3. LEUCOVORIN [Suspect]
     Route: 042
     Dates: start: 20060104, end: 20060104
  4. BEVACIZUMAB [Suspect]
     Route: 042
     Dates: start: 20060104, end: 20060104
  5. CA/MG OR PLACEBO [Suspect]
     Route: 042
     Dates: start: 20060104
  6. DIOVAN [Concomitant]
     Dates: start: 20060123
  7. ACTOS [Concomitant]
     Dates: start: 20060123
  8. ATENOLOL [Concomitant]
     Dates: start: 20060123
  9. LASIX [Concomitant]
     Dates: start: 20060123
  10. ZOCOR [Concomitant]
     Dates: start: 20060123
  11. LISINOPRIL [Concomitant]
     Dates: start: 20060123
  12. ACTONEL [Concomitant]
     Dates: start: 20060123
  13. METFORMIN HYDROCHLORIDE [Concomitant]
     Dates: start: 20060123

REACTIONS (6)
  - ASTHENIA [None]
  - CONTUSION [None]
  - DIZZINESS [None]
  - FALL [None]
  - HEAD INJURY [None]
  - SYNCOPE [None]
